FAERS Safety Report 16416880 (Version 2)
Quarter: 2019Q2

REPORT INFORMATION
  Report Type: Spontaneous
  Country: US (occurrence: US)
  Receive Date: 20190611
  Receipt Date: 20190626
  Transmission Date: 20190711
  Serious: Yes (Other)
  Sender: FDA-Public Use
  Company Number: US-SA-2019SA158534

PATIENT
  Age: 65 Year
  Sex: Male

DRUGS (1)
  1. BCG FOR IMMUNOTHERAPY [Suspect]
     Active Substance: BACILLUS CALMETTE-GUERIN ANTIGEN, UNSPECIFIED SUBSTRAIN
     Indication: BLADDER CANCER RECURRENT
     Dosage: UNK
     Route: 043

REACTIONS (9)
  - Disseminated Bacillus Calmette-Guerin infection [Recovered/Resolved]
  - Pyrexia [Recovered/Resolved]
  - Suprapubic pain [Recovered/Resolved]
  - Mental status changes [Recovered/Resolved]
  - Sepsis [Recovered/Resolved]
  - Chills [Recovered/Resolved]
  - Hypotension [Recovered/Resolved]
  - Jaundice cholestatic [Recovered/Resolved]
  - Disseminated intravascular coagulation [Recovered/Resolved]
